FAERS Safety Report 6957484-4 (Version None)
Quarter: 2010Q3

REPORT INFORMATION
  Report Type: 
  Country: None (occurrence: None)
  Receive Date: 20100826
  Receipt Date: 20100818
  Transmission Date: 20110219
  Serious: Yes (Other)
  Sender: FDA-Public Use
  Company Number: US-1183071

PATIENT
  Sex: Female
  Weight: 49.8957 kg

DRUGS (15)
  1. PREDNISOLONE ACETATE [Suspect]
     Dosage: 1 GTT TID  TO QID OPHTHALMIC
     Route: 047
  2. AGGRENOX [Concomitant]
  3. LASIX [Concomitant]
  4. NAPROXEN [Concomitant]
  5. INDERAL [Concomitant]
  6. SPIRONOLACTONE [Concomitant]
  7. NIFEDIPINE [Concomitant]
  8. LISINOPRIL [Concomitant]
  9. LORTAB [Concomitant]
  10. DIOVAN [Concomitant]
  11. PRILOSEC [Concomitant]
  12. PHENOBARBITAL [Concomitant]
  13. NORVASC [Concomitant]
  14. ZOCOR [Concomitant]
  15. BONIVA [Concomitant]

REACTIONS (2)
  - DRUG INEFFECTIVE [None]
  - SCLERAL HAEMORRHAGE [None]
